FAERS Safety Report 24975920 (Version 1)
Quarter: 2025Q1

REPORT INFORMATION
  Report Type: Spontaneous
  Country: ES (occurrence: ES)
  Receive Date: 20250217
  Receipt Date: 20250217
  Transmission Date: 20250408
  Serious: Yes (Hospitalization, Other)
  Sender: AUROBINDO
  Company Number: ES-AEMPS-1627960

PATIENT
  Age: 75 Year
  Sex: Male
  Weight: 70 kg

DRUGS (2)
  1. MYCOPHENOLIC ACID [Interacting]
     Active Substance: MYCOPHENOLIC ACID
     Indication: Nephrotic syndrome
     Dosage: 540 MILLIGRAM, TWO TIMES A DAY
     Route: 048
     Dates: start: 20240515, end: 20240629
  2. PREDNISONE [Interacting]
     Active Substance: PREDNISONE
     Indication: Nephrotic syndrome
     Dosage: 80 MILLIGRAM, ONCE A DAY
     Route: 048
     Dates: start: 20240515, end: 20240626

REACTIONS (2)
  - Septic shock [Recovered/Resolved]
  - Escherichia urinary tract infection [Recovered/Resolved]

NARRATIVE: CASE EVENT DATE: 20240629
